FAERS Safety Report 15115296 (Version 1)
Quarter: 2018Q3

REPORT INFORMATION
  Report Type: Spontaneous
  Country: US (occurrence: US)
  Receive Date: 20180706
  Receipt Date: 20180706
  Transmission Date: 20181010
  Serious: No
  Sender: FDA-Public Use
  Company Number: US-RECKITT BENCKISER HEALTHCARE INT LIMITED-RB-80227-2018

PATIENT
  Age: 28 Year
  Sex: Female

DRUGS (2)
  1. MUCINEX DM [Suspect]
     Active Substance: DEXTROMETHORPHAN HYDROBROMIDE\GUAIFENESIN
     Dosage: 600 MG, SINGLE, AMOUNT USED: 2
     Route: 065
     Dates: start: 20171214
  2. MUCINEX DM [Suspect]
     Active Substance: DEXTROMETHORPHAN HYDROBROMIDE\GUAIFENESIN
     Indication: PRODUCT USED FOR UNKNOWN INDICATION
     Dosage: 600 MG, SINGLE, AMOUNT USED: 2
     Route: 065
     Dates: start: 20171213

REACTIONS (1)
  - Poisoning [Not Recovered/Not Resolved]

NARRATIVE: CASE EVENT DATE: 20171214
